FAERS Safety Report 16085400 (Version 2)
Quarter: 2019Q1

REPORT INFORMATION
  Report Type: Report from Study
  Country: None (occurrence: BG)
  Receive Date: 20190318
  Receipt Date: 20190320
  Transmission Date: 20190418
  Serious: Yes (Death, Hospitalization, Disabling)
  Sender: FDA-Public Use
  Company Number: BG-ABBVIE-19S-022-2707425-00

PATIENT
  Age: 70 Year
  Sex: Male

DRUGS (1)
  1. DUODOPA [Suspect]
     Active Substance: CARBIDOPA\LEVODOPA
     Indication: PARKINSON^S DISEASE
     Dosage: MD- 9.5 ML CR- 3.5 ML/H EX- 1 ML
     Route: 050
     Dates: start: 20171003

REACTIONS (4)
  - General physical health deterioration [Not Recovered/Not Resolved]
  - Vascular injury [Fatal]
  - Gait inability [Unknown]
  - Confusional state [Unknown]

NARRATIVE: CASE EVENT DATE: 20190311
